FAERS Safety Report 25507134 (Version 2)
Quarter: 2025Q3

REPORT INFORMATION
  Report Type: Report from Study
  Country: GB (occurrence: GB)
  Receive Date: 20250702
  Receipt Date: 20250704
  Transmission Date: 20251020
  Serious: Yes (Other)
  Sender: ABBVIE
  Company Number: GB-ABBVIE-6351756

PATIENT
  Age: 70 Year
  Sex: Male

DRUGS (1)
  1. SKYRIZI [Suspect]
     Active Substance: RISANKIZUMAB-RZAA
     Indication: Product used for unknown indication
     Dosage: SKYRIZI 150MG/1.0ML
     Route: 058

REACTIONS (2)
  - Cerebrovascular accident [Unknown]
  - Wheelchair user [Unknown]

NARRATIVE: CASE EVENT DATE: 20250101
